FAERS Safety Report 4827788-X (Version None)
Quarter: 2005Q4

REPORT INFORMATION
  Report Type: 
  Country: None (occurrence: None)
  Receive Date: 20051110
  Receipt Date: 20051028
  Transmission Date: 20060501
  Serious: Yes (Other)
  Sender: FDA-Public Use
  Company Number: US-2005-023128

PATIENT
  Age: 40 Year
  Sex: Female
  Weight: 61 kg

DRUGS (1)
  1. MIRENA [Suspect]
     Indication: CONTRACEPTION
     Dosage: 20 UG/DAY, CONT, INTRA-UTERINE
     Route: 015
     Dates: start: 20040109, end: 20050916

REACTIONS (4)
  - AMENORRHOEA [None]
  - CERVIX CARCINOMA STAGE 0 [None]
  - INTRA-UTERINE CONTRACEPTIVE DEVICE REMOVAL [None]
  - PROCEDURAL COMPLICATION [None]
